FAERS Safety Report 16198670 (Version 6)
Quarter: 2019Q2

REPORT INFORMATION
  Report Type: Spontaneous
  Country: CN (occurrence: CN)
  Receive Date: 20190415
  Receipt Date: 20190430
  Transmission Date: 20190711
  Serious: Yes (Hospitalization, Other)
  Sender: FDA-Public Use
  Company Number: PHHY2019CN082653

PATIENT
  Age: 77 Year
  Sex: Male

DRUGS (6)
  1. DICLOFENAC [Suspect]
     Active Substance: DICLOFENAC
     Indication: PAIN
     Dosage: UNK
     Route: 048
  2. OMEPRAZOLE. [Suspect]
     Active Substance: OMEPRAZOLE
     Indication: ABDOMINAL DISCOMFORT
     Dosage: UNK
     Route: 048
  3. CEFDINIR. [Suspect]
     Active Substance: CEFDINIR
     Indication: GASTROINTESTINAL INFECTION
     Dosage: 0.1 G, DAILY
     Route: 048
  4. CEFDINIR. [Suspect]
     Active Substance: CEFDINIR
     Indication: ANTIBIOTIC PROPHYLAXIS
  5. PANTOPRAZOLE [Suspect]
     Active Substance: PANTOPRAZOLE
     Indication: ABDOMINAL DISCOMFORT
     Dosage: UNK
     Route: 041
  6. CEFEPIME [Suspect]
     Active Substance: CEFEPIME HYDROCHLORIDE
     Indication: GASTROINTESTINAL INFECTION
     Dosage: 1 G, BID
     Route: 042

REACTIONS (7)
  - Abdominal symptom [Recovered/Resolved]
  - Abdominal pain [Recovered/Resolved]
  - Large intestinal ulcer [Unknown]
  - Clostridium difficile infection [Recovered/Resolved]
  - Gastrointestinal injury [Unknown]
  - Diarrhoea [Recovered/Resolved]
  - Clostridium difficile colitis [Recovered/Resolved]
